FAERS Safety Report 20440742 (Version 12)
Quarter: 2022Q1

REPORT INFORMATION
  Report Type: Report from Study
  Country: CO (occurrence: CO)
  Receive Date: 20220207
  Receipt Date: 20220303
  Transmission Date: 20220423
  Serious: Yes (Hospitalization, Other)
  Sender: FDA-Public Use
  Company Number: CO-ABBVIE-22K-036-4264554-00

PATIENT
  Sex: Male
  Weight: 85 kg

DRUGS (3)
  1. VENCLEXTA [Suspect]
     Active Substance: VENETOCLAX
     Indication: Acute myeloid leukaemia
     Route: 048
     Dates: start: 20220105, end: 20220105
  2. VENCLEXTA [Suspect]
     Active Substance: VENETOCLAX
     Indication: Chronic lymphocytic leukaemia
     Route: 048
     Dates: start: 20220201, end: 20220215
  3. AZACITIDINE [Concomitant]
     Active Substance: AZACITIDINE
     Indication: Neoplasm prophylaxis
     Route: 058
     Dates: start: 20220201, end: 20220207

REACTIONS (16)
  - Depression [Not Recovered/Not Resolved]
  - Differential white blood cell count abnormal [Not Recovered/Not Resolved]
  - Haemoglobin decreased [Recovering/Resolving]
  - Neutropenia [Recovering/Resolving]
  - Thrombocytopenia [Recovered/Resolved]
  - Thrombocytopenia [Recovering/Resolving]
  - Urinary tract infection [Recovered/Resolved]
  - Acute myeloid leukaemia recurrent [Not Recovered/Not Resolved]
  - Hypokalaemia [Recovering/Resolving]
  - Immune system disorder [Recovering/Resolving]
  - Product administration error [Recovering/Resolving]
  - Delusion [Not Recovered/Not Resolved]
  - Decreased appetite [Not Recovered/Not Resolved]
  - Gait disturbance [Not Recovered/Not Resolved]
  - Diarrhoea [Recovering/Resolving]
  - Delirium [Recovering/Resolving]

NARRATIVE: CASE EVENT DATE: 20220101
